FAERS Safety Report 9395627 (Version 1)
Quarter: 2013Q3

REPORT INFORMATION
  Report Type: Spontaneous
  Country: US (occurrence: US)
  Receive Date: 20130711
  Receipt Date: 20130711
  Transmission Date: 20140515
  Serious: Yes (Death, Other)
  Sender: FDA-Public Use
  Company Number: PHHY2013US073110

PATIENT
  Age: 15 Year
  Sex: Male

DRUGS (1)
  1. CYCLOBENZAPRINE [Suspect]

REACTIONS (3)
  - Deep vein thrombosis [Fatal]
  - Pulmonary embolism [Fatal]
  - Toxicity to various agents [Unknown]
